FAERS Safety Report 9423801 (Version 1)
Quarter: 2013Q3

REPORT INFORMATION
  Report Type: Report from Study
  Country: BR (occurrence: BR)
  Receive Date: 20130729
  Receipt Date: 20130729
  Transmission Date: 20140515
  Serious: Yes (Other)
  Sender: FDA-Public Use
  Company Number: BR-AMGEN-BRACT2013051425

PATIENT
  Age: 46 Year
  Sex: Female
  Weight: 71 kg

DRUGS (6)
  1. ETANERCEPT [Suspect]
     Indication: ANKYLOSING SPONDYLITIS
     Dosage: UNK
     Route: 058
  2. ETANERCEPT [Suspect]
     Dosage: 50 MG, ONCE WEEKLY
     Route: 058
     Dates: start: 201107, end: 201303
  3. CELEBRA [Concomitant]
     Dosage: 1 TABLET (20 MG), 2X/DAY
  4. ATENOLOL [Concomitant]
     Dosage: UNK UNK, UNK
  5. SIMVASTATIN [Concomitant]
     Dosage: UNK UNK, UNK
  6. FRONTAL [Concomitant]
     Dosage: 1 TABLET (5 MG), 1X/DAY

REACTIONS (4)
  - Breast cancer [Unknown]
  - Headache [Unknown]
  - Back pain [Unknown]
  - Injection site inflammation [Unknown]
